FAERS Safety Report 13105488 (Version 1)
Quarter: 2017Q1

REPORT INFORMATION
  Report Type: Spontaneous
  Country: US (occurrence: US)
  Receive Date: 20170111
  Receipt Date: 20170111
  Transmission Date: 20170428
  Serious: No
  Sender: FDA-Public Use
  Company Number: US-CELGENEUS-USA-2017011469

PATIENT
  Sex: Female

DRUGS (33)
  1. OTEZLA [Suspect]
     Active Substance: APREMILAST
     Indication: PSORIATIC ARTHROPATHY
     Dosage: 60 MILLIGRAM
     Route: 048
     Dates: start: 20150326
  2. CYCLOBENZAPRINE [Concomitant]
     Active Substance: CYCLOBENZAPRINE
     Indication: PRODUCT USED FOR UNKNOWN INDICATION
     Route: 065
  3. CARVEDILOL. [Concomitant]
     Active Substance: CARVEDILOL
     Route: 065
  4. LANTUS [Concomitant]
     Active Substance: INSULIN GLARGINE
     Route: 065
  5. CYCLOBENZAPRINE [Concomitant]
     Active Substance: CYCLOBENZAPRINE
     Route: 065
  6. CARVEDILOL. [Concomitant]
     Active Substance: CARVEDILOL
     Indication: PRODUCT USED FOR UNKNOWN INDICATION
     Route: 065
  7. DIOVAN [Concomitant]
     Active Substance: VALSARTAN
     Route: 065
  8. HUMALOG [Concomitant]
     Active Substance: INSULIN LISPRO
     Route: 065
  9. HUMALOG [Concomitant]
     Active Substance: INSULIN LISPRO
     Route: 065
  10. CARVEDILOL. [Concomitant]
     Active Substance: CARVEDILOL
     Route: 065
  11. AMLODIPINE [Concomitant]
     Active Substance: AMLODIPINE BESYLATE
     Indication: PRODUCT USED FOR UNKNOWN INDICATION
     Route: 065
  12. AMLODIPINE [Concomitant]
     Active Substance: AMLODIPINE BESYLATE
     Route: 065
  13. HUMALOG [Concomitant]
     Active Substance: INSULIN LISPRO
     Route: 065
  14. LEVOTHROID [Concomitant]
     Active Substance: LEVOTHYROXINE SODIUM
     Indication: PRODUCT USED FOR UNKNOWN INDICATION
     Route: 065
  15. DOCUSATE [Concomitant]
     Active Substance: DOCUSATE
     Route: 065
  16. LEVOTHROID [Concomitant]
     Active Substance: LEVOTHYROXINE SODIUM
     Route: 065
  17. LANTUS [Concomitant]
     Active Substance: INSULIN GLARGINE
     Indication: PRODUCT USED FOR UNKNOWN INDICATION
     Route: 065
  18. DIOVAN [Concomitant]
     Active Substance: VALSARTAN
     Route: 065
  19. HUMALOG [Concomitant]
     Active Substance: INSULIN LISPRO
     Indication: PRODUCT USED FOR UNKNOWN INDICATION
     Route: 065
  20. CYCLOBENZAPRINE [Concomitant]
     Active Substance: CYCLOBENZAPRINE
     Route: 065
  21. CYCLOBENZAPRINE [Concomitant]
     Active Substance: CYCLOBENZAPRINE
     Route: 065
  22. LEVOTHROID [Concomitant]
     Active Substance: LEVOTHYROXINE SODIUM
     Route: 065
  23. LANTUS [Concomitant]
     Active Substance: INSULIN GLARGINE
     Route: 065
  24. DIOVAN [Concomitant]
     Active Substance: VALSARTAN
     Indication: PRODUCT USED FOR UNKNOWN INDICATION
     Route: 065
  25. DOCUSATE [Concomitant]
     Active Substance: DOCUSATE
     Indication: PRODUCT USED FOR UNKNOWN INDICATION
     Route: 065
  26. DOCUSATE [Concomitant]
     Active Substance: DOCUSATE
     Route: 065
  27. LEVOTHROID [Concomitant]
     Active Substance: LEVOTHYROXINE SODIUM
     Route: 065
  28. LANTUS [Concomitant]
     Active Substance: INSULIN GLARGINE
     Route: 065
  29. DIOVAN [Concomitant]
     Active Substance: VALSARTAN
     Route: 065
  30. AMLODIPINE [Concomitant]
     Active Substance: AMLODIPINE BESYLATE
     Route: 065
  31. DOCUSATE [Concomitant]
     Active Substance: DOCUSATE
     Route: 065
  32. CARVEDILOL. [Concomitant]
     Active Substance: CARVEDILOL
     Route: 065
  33. AMLODIPINE [Concomitant]
     Active Substance: AMLODIPINE BESYLATE
     Route: 065

REACTIONS (1)
  - Nausea [Recovered/Resolved]
